FAERS Safety Report 8743182 (Version 5)
Quarter: 2014Q3

REPORT INFORMATION
  Report Type: Spontaneous
  Country: US (occurrence: US)
  Receive Date: 20120824
  Receipt Date: 20140824
  Transmission Date: 20150326
  Serious: Yes (Hospitalization, Other)
  Sender: FDA-Public Use
  Company Number: US-009507513-1208USA008476

PATIENT
  Sex: Female
  Weight: 63.49 kg

DRUGS (1)
  1. NUVARING [Suspect]
     Active Substance: ETHINYL ESTRADIOL\ETONOGESTREL
     Indication: CONTRACEPTION
     Dosage: UNK
     Route: 067
     Dates: start: 20080520, end: 20080610

REACTIONS (9)
  - Diabetes mellitus [Unknown]
  - Hyperlipidaemia [Unknown]
  - Pulmonary embolism [Unknown]
  - Haemorrhage [Unknown]
  - Hypercoagulation [Unknown]
  - Deep vein thrombosis [Unknown]
  - Inappropriate schedule of drug administration [Unknown]
  - Obesity [Unknown]
  - Sleep apnoea syndrome [Unknown]

NARRATIVE: CASE EVENT DATE: 20080520
